FAERS Safety Report 7928828-1 (Version None)
Quarter: 2011Q4

REPORT INFORMATION
  Report Type: 
  Country: None (occurrence: None)
  Receive Date: 20111118
  Receipt Date: 20111115
  Transmission Date: 20120403
  Serious: Yes (Disabling, Other)
  Sender: FDA-Public Use
  Company Number: PHHY2011JP64262

PATIENT
  Sex: Female

DRUGS (7)
  1. AMLODIPINE [Concomitant]
     Indication: HYPERTENSION
     Dosage: 05 MG, UNK
     Route: 048
     Dates: start: 20110428
  2. AFINITOR [Suspect]
     Indication: METASTATIC RENAL CELL CARCINOMA
     Dosage: 10 MG DAILY
     Route: 048
     Dates: start: 20110428, end: 20110722
  3. AFINITOR [Suspect]
     Dosage: 5 MG DAILY
     Route: 048
     Dates: start: 20110902, end: 20110920
  4. FERROUS SULFATE TAB [Concomitant]
     Dosage: 105 MG, UNK
     Route: 048
     Dates: start: 20110805
  5. ADALAT [Concomitant]
     Indication: HYPERTENSION
     Dosage: 20 MG, UNK
     Route: 048
     Dates: start: 20110428
  6. MAGMITT [Concomitant]
     Dosage: 1.5 MG, UNK
     Route: 048
     Dates: start: 20110527
  7. LIPITOR [Concomitant]

REACTIONS (8)
  - GINGIVAL BLEEDING [None]
  - NEOPLASM MALIGNANT [None]
  - DECREASED APPETITE [None]
  - PLATELET COUNT DECREASED [None]
  - C-REACTIVE PROTEIN INCREASED [None]
  - HYPERGLYCAEMIA [None]
  - STOMATITIS [None]
  - NEOPLASM PROGRESSION [None]
